FAERS Safety Report 12487462 (Version 2)
Quarter: 2016Q2

REPORT INFORMATION
  Report Type: Spontaneous
  Country: JP (occurrence: JP)
  Receive Date: 20160622
  Receipt Date: 20160627
  Transmission Date: 20160815
  Serious: Yes (Death, Hospitalization, Other)
  Sender: FDA-Public Use
  Company Number: JP-009507513-1606JPN009471

PATIENT
  Age: 69 Year
  Sex: Female

DRUGS (13)
  1. CYTARABINE. [Suspect]
     Active Substance: CYTARABINE
     Indication: ACUTE LEUKAEMIA
     Dosage: UNK
     Route: 065
  2. DEXAMETHASONE. [Suspect]
     Active Substance: DEXAMETHASONE
     Indication: ACUTE LEUKAEMIA
     Dosage: UNK
     Route: 065
  3. DOXORUBICIN [Suspect]
     Active Substance: DOXORUBICIN
     Indication: ACUTE LEUKAEMIA
     Dosage: UNK
     Route: 065
  4. ETOPOSIDE. [Suspect]
     Active Substance: ETOPOSIDE
     Indication: ACUTE LEUKAEMIA
     Dosage: UNK
     Route: 065
  5. VINCRISTINE SULFATE. [Suspect]
     Active Substance: VINCRISTINE SULFATE
     Indication: ACUTE LEUKAEMIA
     Dosage: UNK
     Route: 065
  6. CYTARABINE. [Suspect]
     Active Substance: CYTARABINE
     Indication: CORD BLOOD TRANSPLANT THERAPY
     Dosage: HIGH DOSE
     Route: 065
  7. MELPHALAN [Suspect]
     Active Substance: MELPHALAN
     Indication: CORD BLOOD TRANSPLANT THERAPY
     Dosage: UNK
     Route: 065
  8. CYCLOPHOSPHAMIDE. [Suspect]
     Active Substance: CYCLOPHOSPHAMIDE
     Indication: ACUTE LEUKAEMIA
     Dosage: UNK
     Route: 065
  9. MITOXANTRONE HYDROCHLORIDE. [Suspect]
     Active Substance: MITOXANTRONE HYDROCHLORIDE
     Indication: ACUTE LEUKAEMIA
     Dosage: UNK
     Route: 065
  10. MICAFUNGIN [Concomitant]
     Active Substance: MICAFUNGIN
     Indication: ACUTE LEUKAEMIA
     Dosage: 50 MG, DAILY
     Route: 065
  11. COLONY STIMULATING FACTOR (UNSPECIFIED) [Suspect]
     Active Substance: GRANULOCYTE COLONY-STIMULATING FACTOR NOS
     Indication: ACUTE LEUKAEMIA
     Dosage: UNK
     Route: 065
  12. FLUDARABINE PHOSPHATE. [Suspect]
     Active Substance: FLUDARABINE PHOSPHATE
     Indication: CORD BLOOD TRANSPLANT THERAPY
     Dosage: UNK
     Route: 065
  13. MICAFUNGIN [Concomitant]
     Active Substance: MICAFUNGIN
     Dosage: 150 MG, QD
     Route: 065

REACTIONS (5)
  - Fungaemia [Fatal]
  - Neutropenia [Unknown]
  - Respiratory failure [Unknown]
  - Tumour lysis syndrome [Unknown]
  - Drug ineffective [Unknown]
